FAERS Safety Report 7458072-6 (Version None)
Quarter: 2011Q2

REPORT INFORMATION
  Report Type: 
  Country: None (occurrence: None)
  Receive Date: 20110504
  Receipt Date: 20110428
  Transmission Date: 20111010
  Serious: Yes (Hospitalization)
  Sender: FDA-Public Use
  Company Number: GB-AMGEN-GBRCT2011022803

PATIENT
  Age: 63 Year
  Sex: Male

DRUGS (4)
  1. CAPECITABINE [Concomitant]
     Dosage: UNK
     Dates: start: 20100727
  2. PANITUMUMAB [Suspect]
     Indication: GASTROOESOPHAGEAL CANCER
     Dosage: UNK
     Dates: start: 20100727
  3. EPIRUBICIN [Concomitant]
     Dosage: UNK
     Dates: start: 20100727
  4. OXALIPLATIN [Concomitant]
     Dosage: UNK
     Dates: start: 20100727

REACTIONS (1)
  - THROMBOSIS [None]
